FAERS Safety Report 7998895-8 (Version None)
Quarter: 2011Q4

REPORT INFORMATION
  Report Type: 
  Country: None (occurrence: None)
  Receive Date: 20111221
  Receipt Date: 20111220
  Transmission Date: 20120403
  Serious: Yes (Hospitalization)
  Sender: FDA-Public Use
  Company Number: US-GLAXOSMITHKLINE-A0958858A

PATIENT
  Age: 42 Year
  Sex: Male
  Weight: 77.6 kg

DRUGS (7)
  1. MULTI-VITAMIN [Concomitant]
     Route: 048
     Dates: start: 20110621
  2. ZOFRAN [Concomitant]
     Route: 048
     Dates: start: 20110621
  3. REMERON [Concomitant]
     Route: 048
     Dates: start: 20111003
  4. MAGNESIUM OXIDE [Concomitant]
     Route: 048
     Dates: start: 20110802
  5. PAZOPANIB [Suspect]
     Indication: NON-SMALL CELL LUNG CANCER
     Dosage: 800MG PER DAY
     Route: 048
     Dates: start: 20110621, end: 20111129
  6. NORVASC [Concomitant]
     Dosage: 2.5MG PER DAY
     Route: 048
     Dates: start: 20110712
  7. PROCHLORPERAZINE [Concomitant]
     Route: 048
     Dates: start: 20110621

REACTIONS (1)
  - PERICARDIAL EFFUSION [None]
